FAERS Safety Report 6815490-4 (Version None)
Quarter: 2010Q2

REPORT INFORMATION
  Report Type: 
  Country: None (occurrence: None)
  Receive Date: 20100630
  Receipt Date: 20100622
  Transmission Date: 20101027
  Serious: Yes (Hospitalization, Other)
  Sender: FDA-Public Use
  Company Number: TPA2010A03750

PATIENT
  Age: 63 Year
  Sex: Female
  Weight: 86.1834 kg

DRUGS (3)
  1. ACTOS [Suspect]
     Indication: DIABETES MELLITUS
     Dosage: 1 IN 1 D, PER ORAL
     Route: 048
     Dates: start: 20090101, end: 20091101
  2. METOPROLOL SUCCINATE [Concomitant]
  3. HYDROCODONE BITARTRATE [Concomitant]

REACTIONS (2)
  - MYOCARDIAL INFARCTION [None]
  - RENAL FAILURE [None]
